FAERS Safety Report 5754656-1 (Version None)
Quarter: 2008Q2

REPORT INFORMATION
  Report Type: 
  Country: None (occurrence: None)
  Receive Date: 20080530
  Receipt Date: 20080520
  Transmission Date: 20081010
  Serious: Yes (Hospitalization)
  Sender: FDA-Public Use
  Company Number: GB-PFIZER INC-2008043722

PATIENT
  Age: 63 Year
  Sex: Male
  Weight: 85 kg

DRUGS (7)
  1. CHANTIX [Suspect]
     Indication: SMOKING CESSATION THERAPY
     Route: 048
     Dates: start: 20080423, end: 20080502
  2. ACETYLSALICYLIC ACID SRT [Concomitant]
     Route: 048
  3. ATORVASTATIN CALCIUM [Concomitant]
     Route: 048
  4. BENDROFLUAZIDE [Concomitant]
     Route: 048
  5. BISOPROLOL FUMARATE [Concomitant]
     Route: 048
  6. TAMSULOSIN HCL [Concomitant]
     Route: 048
  7. VALSARTAN [Concomitant]
     Route: 048

REACTIONS (3)
  - ANGINA PECTORIS [None]
  - COUGH [None]
  - SPUTUM ABNORMAL [None]
